FAERS Safety Report 17153280 (Version 2)
Quarter: 2020Q1

REPORT INFORMATION
  Report Type: Spontaneous
  Country: GB (occurrence: GB)
  Receive Date: 20191213
  Receipt Date: 20200316
  Transmission Date: 20200409
  Serious: Yes (Disabling, Other)
  Sender: FDA-Public Use
  Company Number: GB-ASTRAZENECA-2019SF76803

PATIENT
  Age: 89 Year
  Sex: Female
  Weight: 49.3 kg

DRUGS (3)
  1. LYNPARZA [Suspect]
     Active Substance: OLAPARIB
     Indication: OVARIAN CANCER
     Route: 048
     Dates: start: 20181023, end: 20191117
  2. LYNPARZA [Interacting]
     Active Substance: OLAPARIB
     Indication: OVARIAN CANCER
     Dosage: 300.0MG UNKNOWN
     Route: 048
     Dates: start: 20181023, end: 20191117
  3. SIMVASTATIN. [Interacting]
     Active Substance: SIMVASTATIN
     Route: 065

REACTIONS (9)
  - Arthralgia [Recovering/Resolving]
  - Pain in extremity [Recovering/Resolving]
  - Muscular weakness [Recovering/Resolving]
  - Drug interaction [Unknown]
  - Myalgia [Recovering/Resolving]
  - Toxicity to various agents [Recovering/Resolving]
  - Musculoskeletal toxicity [Recovering/Resolving]
  - Rhabdomyolysis [Recovering/Resolving]
  - Myopathy [Recovering/Resolving]

NARRATIVE: CASE EVENT DATE: 201911
